FAERS Safety Report 13648644 (Version 2)
Quarter: 2017Q2

REPORT INFORMATION
  Report Type: Report from Study
  Country: US (occurrence: CA)
  Receive Date: 20170613
  Receipt Date: 20170627
  Transmission Date: 20170830
  Serious: Yes (Hospitalization, Disabling)
  Sender: FDA-Public Use
  Company Number: US-SUNOVION-2017SUN002475

PATIENT
  Age: 29 Year
  Sex: Male

DRUGS (21)
  1. XOLAIR [Suspect]
     Active Substance: OMALIZUMAB
     Dosage: UNK
     Route: 058
     Dates: start: 20170615
  2. GABAPENTIN. [Concomitant]
     Active Substance: GABAPENTIN
     Dosage: 300 MG, UNK
  3. GLYCOPYRROLATE. [Suspect]
     Active Substance: GLYCOPYRROLATE
     Indication: ASTHMA
     Dosage: 2 DF, QD
     Route: 055
  4. COMBIVENT RESPIMAT [Concomitant]
     Active Substance: ALBUTEROL SULFATE\IPRATROPIUM BROMIDE
  5. SINEQUAN [Concomitant]
     Active Substance: DOXEPIN HYDROCHLORIDE
     Dosage: 25 MG, UNK
  6. ADVAIR HFA [Concomitant]
     Active Substance: FLUTICASONE PROPIONATE\SALMETEROL XINAFOATE
  7. GARLIC. [Concomitant]
     Active Substance: GARLIC
  8. DILAUDID HP [Concomitant]
     Active Substance: HYDROMORPHONE HYDROCHLORIDE
     Dosage: 8 MG, UNK
  9. PREDNISONE. [Concomitant]
     Active Substance: PREDNISONE
     Dosage: 35 UNK, UNK
  10. SALBUTAMOL [Concomitant]
     Active Substance: ALBUTEROL
  11. VITAMIN D [Concomitant]
     Active Substance: CHOLECALCIFEROL
  12. GINSENG [Concomitant]
     Active Substance: ASIAN GINSENG
  13. FISH OIL [Concomitant]
     Active Substance: FISH OIL
  14. XOLAIR [Suspect]
     Active Substance: OMALIZUMAB
     Dosage: 225 MG, BIW
     Route: 058
  15. XOLAIR [Suspect]
     Active Substance: OMALIZUMAB
     Dosage: UNK
     Route: 058
     Dates: start: 20170504
  16. PULMICORT TURBUHALER [Concomitant]
     Active Substance: BUDESONIDE
  17. LEFLUNOMIDE. [Concomitant]
     Active Substance: LEFLUNOMIDE
  18. SERRAPEPTASE [Concomitant]
     Active Substance: SERRAPEPTASE
  19. TURMERIC [Concomitant]
     Active Substance: HERBALS\TURMERIC
  20. XOLAIR [Suspect]
     Active Substance: OMALIZUMAB
     Indication: ASTHMA
     Dosage: 225 MG, BIW
     Route: 058
     Dates: start: 20121127, end: 20131223
  21. PREDNISONE. [Concomitant]
     Active Substance: PREDNISONE
     Dosage: 30 MG, UNK

REACTIONS (20)
  - Blood pressure systolic increased [Unknown]
  - Bronchial wall thickening [Unknown]
  - Cough [Not Recovered/Not Resolved]
  - Dyspnoea [Not Recovered/Not Resolved]
  - Oropharyngeal pain [Unknown]
  - Asthma [Unknown]
  - Rheumatoid arthritis [Not Recovered/Not Resolved]
  - Chest discomfort [Unknown]
  - Reflexes abnormal [Unknown]
  - Dyspnoea exertional [Recovering/Resolving]
  - Arthralgia [Unknown]
  - Sleep disorder [Unknown]
  - Blood immunoglobulin E increased [Unknown]
  - Drug ineffective [Unknown]
  - Blood immunoglobulin M decreased [Unknown]
  - Product use in unapproved indication [Unknown]
  - Sarcoidosis [Unknown]
  - Forced expiratory volume decreased [Unknown]
  - Blood immunoglobulin E decreased [Unknown]
  - Lung disorder [Unknown]

NARRATIVE: CASE EVENT DATE: 201311
